FAERS Safety Report 6107159-9 (Version None)
Quarter: 2009Q1

REPORT INFORMATION
  Report Type: 
  Country: None (occurrence: None)
  Receive Date: 20090305
  Receipt Date: 20090305
  Transmission Date: 20090719
  Serious: Yes (Other)
  Sender: FDA-Public Use
  Company Number: None

PATIENT
  Age: 53 Year
  Sex: Female
  Weight: 89.8122 kg

DRUGS (3)
  1. FORTAMET [Suspect]
     Indication: DIABETES MELLITUS INADEQUATE CONTROL
     Dosage: 1000 MG TWICE DAILY PO
     Route: 048
  2. ACTOS [Suspect]
     Indication: DIABETES MELLITUS INADEQUATE CONTROL
     Dosage: 30 MG Q DAY PO
     Route: 048
  3. AVANDIA [Concomitant]

REACTIONS (5)
  - ABDOMINAL PAIN [None]
  - ALOPECIA [None]
  - DIARRHOEA [None]
  - HYPOGLYCAEMIA [None]
  - PALPITATIONS [None]
